FAERS Safety Report 4979145-3 (Version None)
Quarter: 2006Q2

REPORT INFORMATION
  Report Type: 
  Country: None (occurrence: None)
  Receive Date: 20060421
  Receipt Date: 20050817
  Transmission Date: 20061013
  Serious: Yes (Hospitalization, Other)
  Sender: FDA-Public Use
  Company Number: US-BRISTOL-MYERS SQUIBB COMPANY-13082094

PATIENT
  Age: 62 Year
  Sex: Female
  Weight: 75 kg

DRUGS (8)
  1. ABILIFY [Suspect]
     Indication: BIPOLAR DISORDER
     Dosage: DOSE ALSO REPORTED AS 15 MG ONCE DAILY.
     Route: 048
     Dates: start: 20050701, end: 20050801
  2. VASOTEC [Concomitant]
  3. CYMBALTA [Concomitant]
  4. VITAMINS [Concomitant]
  5. CARDIZEM [Concomitant]
  6. GLUCOSAMINE [Concomitant]
  7. ASPIRIN [Concomitant]
  8. TRILEPTAL [Concomitant]

REACTIONS (9)
  - ATRIAL FLUTTER [None]
  - CEREBROVASCULAR ACCIDENT [None]
  - CHEST PAIN [None]
  - HEART RATE IRREGULAR [None]
  - POLLAKIURIA [None]
  - SALIVARY HYPERSECRETION [None]
  - THIRST [None]
  - TRANSIENT ISCHAEMIC ATTACK [None]
  - VISUAL DISTURBANCE [None]
